FAERS Safety Report 12694111 (Version 5)
Quarter: 2018Q1

REPORT INFORMATION
  Report Type: Report from Study
  Country: JP (occurrence: JP)
  Receive Date: 20160829
  Receipt Date: 20180226
  Transmission Date: 20180508
  Serious: Yes (Death, Hospitalization, Other)
  Sender: FDA-Public Use
  Company Number: JP-BRISTOL-MYERS SQUIBB COMPANY-BMS-2016-042754

PATIENT
  Age: 50 Year
  Sex: Male
  Weight: 63 kg

DRUGS (11)
  1. OPDIVO [Suspect]
     Active Substance: NIVOLUMAB
     Indication: PRODUCT USED FOR UNKNOWN INDICATION
     Dosage: UNK
     Route: 065
     Dates: start: 20160711, end: 20161115
  2. REBAMIPIDE [Concomitant]
     Active Substance: REBAMIPIDE
     Indication: MALIGNANT MELANOMA STAGE IV
     Dosage: 1 DF, UNK
     Route: 048
     Dates: start: 20160526, end: 20161126
  3. LANSOPRAZOLE. [Concomitant]
     Active Substance: LANSOPRAZOLE
     Indication: MALIGNANT MELANOMA STAGE IV
     Dosage: 1 DF, UNK
     Route: 048
     Dates: start: 20160527, end: 20160613
  4. BAKTAR [Concomitant]
     Active Substance: SULFAMETHOXAZOLE\TRIMETHOPRIM
     Indication: MALIGNANT MELANOMA STAGE IV
     Dosage: 1 DF, UNK
     Route: 048
     Dates: start: 20160527, end: 20170713
  5. OPDIVO [Suspect]
     Active Substance: NIVOLUMAB
     Indication: PRODUCT USED FOR UNKNOWN INDICATION
     Dosage: 3 MG/KG, Q2WK
     Route: 041
     Dates: start: 20160310, end: 20160421
  6. OPDIVO [Suspect]
     Active Substance: NIVOLUMAB
     Indication: PRODUCT USED FOR UNKNOWN INDICATION
     Dosage: UNK
     Route: 041
     Dates: start: 201505
  7. SODIUM PICOSULFATE [Concomitant]
     Active Substance: SODIUM PICOSULFATE
     Indication: MALIGNANT MELANOMA STAGE IV
     Dosage: UNK
     Route: 048
     Dates: start: 20160526, end: 20160709
  8. PREDONINE [Concomitant]
     Active Substance: PREDNISOLONE
     Indication: MALIGNANT MELANOMA STAGE IV
     Dosage: 2 DF, UNK
     Route: 048
     Dates: start: 20160527, end: 20160613
  9. OPDIVO [Suspect]
     Active Substance: NIVOLUMAB
     Indication: MALIGNANT MELANOMA STAGE IV
     Dosage: 2 MG/KG, Q3WK
     Route: 041
     Dates: start: 20151203, end: 20160225
  10. LOXOPROFEN                         /00890702/ [Concomitant]
     Active Substance: LOXOPROFEN
     Indication: MALIGNANT MELANOMA STAGE IV
     Dosage: 1 DF, UNK
     Route: 048
     Dates: start: 20160326, end: 20161126
  11. IPILIMUMAB [Suspect]
     Active Substance: IPILIMUMAB
     Indication: MALIGNANT MELANOMA STAGE IV
     Dosage: 3 MG/KG, QD
     Route: 041
     Dates: start: 20160509, end: 20160509

REACTIONS (3)
  - Enteritis [Recovering/Resolving]
  - Liver disorder [Recovered/Resolved]
  - Malignant neoplasm progression [Fatal]

NARRATIVE: CASE EVENT DATE: 20160523
